FAERS Safety Report 9411354 (Version 2)
Quarter: 2013Q3

REPORT INFORMATION
  Report Type: Spontaneous
  Country: DE (occurrence: DE)
  Receive Date: 20130722
  Receipt Date: 20130807
  Transmission Date: 20140515
  Serious: Yes (Hospitalization, Other)
  Sender: FDA-Public Use
  Company Number: GXKR2013DE002436

PATIENT
  Sex: Male

DRUGS (8)
  1. BICALUTAMIDE [Suspect]
     Dosage: UNK UKN, UNK
     Route: 048
  2. C-VITAMIN [Concomitant]
     Dosage: 7.5 G, QW3
  3. ZOLADEX [Concomitant]
  4. ZOMETA [Concomitant]
  5. RAMIPRIL [Concomitant]
  6. AMLODIPINE [Concomitant]
  7. TORASEMID [Concomitant]
  8. TAMSUBLOCK [Concomitant]

REACTIONS (5)
  - Endocarditis [Unknown]
  - Pneumonia [Unknown]
  - Nausea [Unknown]
  - Decreased appetite [Unknown]
  - Abdominal distension [Unknown]
